FAERS Safety Report 18855729 (Version 2)
Quarter: 2021Q1

REPORT INFORMATION
  Report Type: Spontaneous
  Country: AU (occurrence: AU)
  Receive Date: 20210205
  Receipt Date: 20210212
  Transmission Date: 20210420
  Serious: Yes (Other)
  Sender: FDA-Public Use
  Company Number: AU-GILEAD-2021-0516233

PATIENT
  Sex: Female

DRUGS (12)
  1. MIRTAZAPINE. [Concomitant]
     Active Substance: MIRTAZAPINE
  2. ATENOLOL. [Concomitant]
     Active Substance: ATENOLOL
  3. GENVOYA [Suspect]
     Active Substance: COBICISTAT\ELVITEGRAVIR\EMTRICITABINE\TENOFOVIR ALAFENAMIDE FUMARATE
     Indication: PRODUCT USED FOR UNKNOWN INDICATION
     Route: 065
  4. THIAMINE. [Concomitant]
     Active Substance: THIAMINE
  5. NORVIR [Suspect]
     Active Substance: RITONAVIR
     Indication: PRODUCT USED FOR UNKNOWN INDICATION
     Route: 065
  6. ROSUVASTATIN. [Concomitant]
     Active Substance: ROSUVASTATIN
  7. ZIDOVUDINE. [Suspect]
     Active Substance: ZIDOVUDINE
     Indication: PRODUCT USED FOR UNKNOWN INDICATION
     Route: 065
  8. EFAVIRENZ. [Suspect]
     Active Substance: EFAVIRENZ
     Indication: PRODUCT USED FOR UNKNOWN INDICATION
     Route: 065
  9. ABACAVIR SULFATE;LAMIVUDINE [Suspect]
     Active Substance: ABACAVIR SULFATE\LAMIVUDINE
     Indication: PRODUCT USED FOR UNKNOWN INDICATION
     Route: 065
  10. LAMIVUDINE. [Suspect]
     Active Substance: LAMIVUDINE
     Indication: PRODUCT USED FOR UNKNOWN INDICATION
     Route: 065
  11. DARUNAVIR [Suspect]
     Active Substance: DARUNAVIR
     Indication: PRODUCT USED FOR UNKNOWN INDICATION
     Route: 065
  12. ASPIRIN [ACETYLSALICYLIC ACID] [Concomitant]
     Active Substance: ASPIRIN

REACTIONS (20)
  - Disorientation [Unknown]
  - Loss of personal independence in daily activities [Unknown]
  - Viral mutation identified [Unknown]
  - Pathogen resistance [Unknown]
  - Behaviour disorder [Unknown]
  - Gait disturbance [Unknown]
  - Meningitis viral [Unknown]
  - Central nervous system inflammation [Unknown]
  - Rhinitis [Unknown]
  - Treatment noncompliance [Unknown]
  - HIV-associated neurocognitive disorder [Unknown]
  - Dysdiadochokinesis [Unknown]
  - Dysarthria [Unknown]
  - Hypophagia [Unknown]
  - Cerebellar syndrome [Unknown]
  - Meningoencephalitis viral [Unknown]
  - Chorea [Unknown]
  - Parainfluenzae virus infection [Unknown]
  - Magnetic resonance imaging brain abnormal [Unknown]
  - Confusional state [Unknown]
